FAERS Safety Report 13325501 (Version 1)
Quarter: 2017Q1

REPORT INFORMATION
  Report Type: Spontaneous
  Country: US (occurrence: US)
  Receive Date: 20170310
  Receipt Date: 20170310
  Transmission Date: 20170428
  Serious: No
  Sender: FDA-Public Use
  Company Number: US-PERRIGO-16US023236

PATIENT
  Age: 63 Year
  Sex: Male
  Weight: 90.7 kg

DRUGS (3)
  1. TESTOSTERONE CYPIONATE. [Suspect]
     Active Substance: TESTOSTERONE CYPIONATE
     Dosage: 1 ML, TWICE A MONTH
     Route: 030
     Dates: start: 2016, end: 2016
  2. TESTOSTERONE CYPIONATE. [Suspect]
     Active Substance: TESTOSTERONE CYPIONATE
     Indication: BLOOD TESTOSTERONE DECREASED
     Dosage: 200 MG, ONCE A MONTH
     Route: 030
     Dates: start: 201605, end: 2016
  3. TESTOSTERONE CYPIONATE. [Suspect]
     Active Substance: TESTOSTERONE CYPIONATE
     Dosage: 1 ML, EVERY SEVEN DAYS
     Route: 030
     Dates: start: 201612

REACTIONS (2)
  - Blood glucose increased [Unknown]
  - Drug administered at inappropriate site [Unknown]

NARRATIVE: CASE EVENT DATE: 201605
